FAERS Safety Report 22373519 (Version 2)
Quarter: 2023Q2

REPORT INFORMATION
  Report Type: Spontaneous
  Country: JP (occurrence: JP)
  Receive Date: 20230526
  Receipt Date: 20230529
  Transmission Date: 20230721
  Serious: Yes (Hospitalization, Other)
  Sender: FDA-Public Use
  Company Number: JP-MSD-M2023-19360

PATIENT
  Age: 27 Year
  Sex: Female

DRUGS (1)
  1. KEYTRUDA [Suspect]
     Active Substance: PEMBROLIZUMAB
     Indication: Cervix carcinoma stage III
     Dosage: 200 MILLIGRAM, Q3W
     Route: 041

REACTIONS (3)
  - Enterovesical fistula [Unknown]
  - Urogenital fistula [Unknown]
  - Female genital tract fistula [Unknown]
